FAERS Safety Report 24060139 (Version 2)
Quarter: 2024Q3

REPORT INFORMATION
  Report Type: Spontaneous
  Country: US (occurrence: US)
  Receive Date: 20240708
  Receipt Date: 20240930
  Transmission Date: 20241016
  Serious: No
  Sender: PAREXEL
  Company Number: US Coherus Biosciences INC - 2024-COH-US000319

PATIENT

DRUGS (3)
  1. YUSIMRY [Suspect]
     Active Substance: ADALIMUMAB-AQVH
     Indication: Crohn^s disease
     Dosage: 40 MG, Q2WEEKS
     Route: 058
  2. YUSIMRY [Suspect]
     Active Substance: ADALIMUMAB-AQVH
     Dosage: 40 MG, Q2WEEKS
     Route: 058
  3. YUSIMRY [Suspect]
     Active Substance: ADALIMUMAB-AQVH
     Dosage: 40 MG, Q2WEEKS
     Route: 058

REACTIONS (3)
  - Product quality issue [Not Recovered/Not Resolved]
  - Product dose omission issue [Not Recovered/Not Resolved]
  - No adverse event [Unknown]

NARRATIVE: CASE EVENT DATE: 20240501
